FAERS Safety Report 16769282 (Version 1)
Quarter: 2019Q3

REPORT INFORMATION
  Report Type: Spontaneous
  Country: US (occurrence: US)
  Receive Date: 20190903
  Receipt Date: 20190903
  Transmission Date: 20191005
  Serious: No
  Sender: FDA-Public Use
  Company Number: US-PTC THERAPEUTICS, INC.-US-2019PTC001173

PATIENT
  Sex: Male

DRUGS (2)
  1. EMFLAZA [Suspect]
     Active Substance: DEFLAZACORT
     Indication: DUCHENNE MUSCULAR DYSTROPHY
     Dosage: 6 ML, WEEKEND DOSING (SATURDAYS AND SUNDAYS)
     Route: 048
     Dates: start: 20190713
  2. EMFLAZA [Suspect]
     Active Substance: DEFLAZACORT
     Dosage: UNK
     Route: 065
     Dates: start: 20170625, end: 20190713

REACTIONS (4)
  - Muscle tightness [Not Recovered/Not Resolved]
  - Off label use [Unknown]
  - Gait disturbance [Not Recovered/Not Resolved]
  - Mobility decreased [Not Recovered/Not Resolved]
